FAERS Safety Report 9929310 (Version 1)
Quarter: 2014Q1

REPORT INFORMATION
  Report Type: Spontaneous
  Country: US (occurrence: US)
  Receive Date: 20140227
  Receipt Date: 20140227
  Transmission Date: 20141002
  Serious: Yes (Other)
  Sender: FDA-Public Use
  Company Number: US-BAYER-2014-025768

PATIENT
  Sex: 0

DRUGS (2)
  1. ADEMPAS [Suspect]
     Indication: PULMONARY ARTERIAL HYPERTENSION
     Dosage: ABOUT FIVE DOSES TOTAL
  2. REVATIO [Concomitant]

REACTIONS (1)
  - Coagulation time abnormal [None]
